FAERS Safety Report 14201435 (Version 1)
Quarter: 2017Q4

REPORT INFORMATION
  Report Type: Spontaneous
  Country: US (occurrence: US)
  Receive Date: 20171117
  Receipt Date: 20171117
  Transmission Date: 20180321
  Serious: No
  Sender: FDA-Public Use
  Company Number: US-PERRIGO-17US023534

PATIENT
  Age: 1 Year
  Sex: Female
  Weight: 12.25 kg

DRUGS (1)
  1. POLYETHYLENE GLYCOL 3350. [Suspect]
     Active Substance: POLYETHYLENE GLYCOL 3350
     Indication: CONSTIPATION
     Dosage: 1.5 TSP, QD
     Route: 048
     Dates: start: 201612, end: 20170508

REACTIONS (3)
  - Drug administered to patient of inappropriate age [Recovered/Resolved]
  - Dysphemia [Not Recovered/Not Resolved]
  - Incorrect drug administration duration [Recovered/Resolved]

NARRATIVE: CASE EVENT DATE: 201612
